FAERS Safety Report 20165319 (Version 1)
Quarter: 2021Q4

REPORT INFORMATION
  Report Type: Spontaneous
  Country: US (occurrence: US)
  Receive Date: 20211209
  Receipt Date: 20211209
  Transmission Date: 20220303
  Serious: No
  Sender: FDA-Public Use
  Company Number: US-SA-SAC20211202001176

PATIENT
  Age: 10 Year
  Sex: Male

DRUGS (6)
  1. ALPROLIX [Suspect]
     Active Substance: EFTRENONACOG ALFA
     Indication: Factor IX deficiency
     Dosage: 3250 IU, QW
     Route: 042
     Dates: start: 202104
  2. ALPROLIX [Suspect]
     Active Substance: EFTRENONACOG ALFA
     Indication: Factor IX deficiency
     Dosage: 3250 IU, QW
     Route: 042
     Dates: start: 202104
  3. ALPROLIX [Suspect]
     Active Substance: EFTRENONACOG ALFA
     Indication: Haemorrhage
     Dosage: 3250 IU X2 (DOUBLE DOSE FOR HEAD, NECK, OR ABDOMINAL BLEEDS)
     Route: 042
  4. ALPROLIX [Suspect]
     Active Substance: EFTRENONACOG ALFA
     Indication: Haemorrhage
     Dosage: 3250 IU X2 (DOUBLE DOSE FOR HEAD, NECK, OR ABDOMINAL BLEEDS)
     Route: 042
  5. ALPROLIX [Suspect]
     Active Substance: EFTRENONACOG ALFA
     Dosage: 3250 IU, PRN (AS NEEDED FOR MILD TO MODERATE BLEED)
     Route: 042
     Dates: start: 202104
  6. ALPROLIX [Suspect]
     Active Substance: EFTRENONACOG ALFA
     Dosage: 3250 IU, PRN (AS NEEDED FOR MILD TO MODERATE BLEED)
     Route: 042
     Dates: start: 202104

REACTIONS (1)
  - Weight decreased [Unknown]

NARRATIVE: CASE EVENT DATE: 20210101
